FAERS Safety Report 11203108 (Version 1)
Quarter: 2015Q2

REPORT INFORMATION
  Report Type: Spontaneous
  Country: US (occurrence: None)
  Receive Date: 20150617
  Receipt Date: 20150617
  Transmission Date: 20150821
  Serious: Yes (Other)
  Sender: FDA-Public Use
  Company Number: None

PATIENT
  Age: 82 Year
  Sex: Male
  Weight: 83.92 kg

DRUGS (11)
  1. OMETRACOLE [Concomitant]
  2. ATORVASTIN [Concomitant]
     Active Substance: ATORVASTATIN
  3. CARVEPILOL [Concomitant]
  4. WARFIN [Concomitant]
     Active Substance: WARFARIN
  5. AMIODARONE [Suspect]
     Active Substance: AMIODARONE
     Indication: CARDIAC DISORDER
     Dosage: 400MG?1 PILL?1/2 MORNING ?1/2 SUPPER?BY MOUTH
     Route: 048
     Dates: start: 20140801, end: 20150522
  6. AMITRIPHIN LEVOHOYIN [Concomitant]
  7. FUROSMIDE [Concomitant]
  8. GLIPIZIDE. [Concomitant]
     Active Substance: GLIPIZIDE
  9. RANITIDIN [Concomitant]
     Active Substance: RANITIDINE HYDROCHLORIDE
  10. VITAMIM BS [Concomitant]
  11. MELATONIN [Concomitant]
     Active Substance: MELATONIN

REACTIONS (3)
  - Renal disorder [None]
  - Gastrooesophageal reflux disease [None]
  - Goitre [None]

NARRATIVE: CASE EVENT DATE: 201409
